FAERS Safety Report 23799539 (Version 1)
Quarter: 2024Q2

REPORT INFORMATION
  Report Type: Spontaneous
  Country: US (occurrence: None)
  Receive Date: 20240428
  Receipt Date: 20240428
  Transmission Date: 20240716
  Serious: Yes (Hospitalization)
  Sender: FDA-Public Use
  Company Number: None

PATIENT
  Age: 51 Year
  Sex: Male

DRUGS (1)
  1. ROSUVASTATIN [Suspect]
     Active Substance: ROSUVASTATIN
     Indication: Hyperlipidaemia
     Dates: start: 20190101, end: 20230227

REACTIONS (2)
  - Rhabdomyolysis [None]
  - Therapy cessation [None]

NARRATIVE: CASE EVENT DATE: 20230227
